FAERS Safety Report 12492437 (Version 1)
Quarter: 2016Q2

REPORT INFORMATION
  Report Type: Report from Study
  Country: TR (occurrence: TR)
  Receive Date: 20160623
  Receipt Date: 20160623
  Transmission Date: 20160815
  Serious: Yes (Death, Other)
  Sender: FDA-Public Use
  Company Number: TR-JAZZ-2014-TR-019304

PATIENT

DRUGS (1)
  1. DEFIBROTIDE (NPB) [Suspect]
     Active Substance: DEFIBROTIDE SODIUM
     Indication: PROPHYLAXIS
     Dosage: 25 MG/KG, QD
     Route: 042

REACTIONS (3)
  - Pulmonary veno-occlusive disease [Fatal]
  - Off label use [Unknown]
  - Venoocclusive liver disease [Fatal]
